FAERS Safety Report 16866276 (Version 2)
Quarter: 2020Q4

REPORT INFORMATION
  Report Type: Spontaneous
  Country: US (occurrence: US)
  Receive Date: 20190930
  Receipt Date: 20201019
  Transmission Date: 20210113
  Serious: No
  Sender: FDA-Public Use
  Company Number: US-ALLERGAN-1908281US

PATIENT
  Age: 44 Year
  Sex: Female

DRUGS (6)
  1. VRAYLAR [Suspect]
     Active Substance: CARIPRAZINE
     Dosage: 4.5 UNK
  2. VRAYLAR [Suspect]
     Active Substance: CARIPRAZINE
     Dosage: 6 MG
     Route: 048
  3. AMBEN [Suspect]
     Active Substance: CEFADROXIL
     Indication: SLEEP DISORDER
     Dosage: 10 MG
     Route: 065
  4. AMBEN [Suspect]
     Active Substance: CEFADROXIL
     Dosage: 5 UNK
     Dates: start: 20190213
  5. VRAYLAR [Suspect]
     Active Substance: CARIPRAZINE
     Indication: SCHIZOPHRENIA
     Dosage: 1.3 MG, QD
     Dates: start: 20190207
  6. VRAYLAR [Suspect]
     Active Substance: CARIPRAZINE
     Indication: BIPOLAR DISORDER
     Dosage: 3 MG, QHS
     Route: 065

REACTIONS (1)
  - Vision blurred [Recovered/Resolved]

NARRATIVE: CASE EVENT DATE: 20190222
